FAERS Safety Report 10844319 (Version 2)
Quarter: 2015Q1

REPORT INFORMATION
  Report Type: Spontaneous
  Country: IT (occurrence: IT)
  Receive Date: 20150220
  Receipt Date: 20150311
  Transmission Date: 20150721
  Serious: Yes (Hospitalization)
  Sender: FDA-Public Use
  Company Number: IT-BAYER-2015-022773

PATIENT
  Age: 73 Year
  Sex: Male
  Weight: 68 kg

DRUGS (7)
  1. ZESTRIL [Concomitant]
     Active Substance: LISINOPRIL
     Indication: HYPERTENSION
     Dosage: DAILY DOSE 20 MG
  2. NEXAVAR [Suspect]
     Active Substance: SORAFENIB
     Indication: METASTATIC RENAL CELL CARCINOMA
     Dosage: DOSAGE WAS DECREASED
  3. EUTIROX [Concomitant]
     Active Substance: LEVOTHYROXINE SODIUM
     Indication: HYPOTHYROIDISM
     Dosage: DAILY DOSE 125 ?G
  4. CONCOR [Concomitant]
     Active Substance: BISOPROLOL FUMARATE
     Indication: HYPERTENSION
     Dosage: DAILY DOSE 10 MG
  5. NEXAVAR [Suspect]
     Active Substance: SORAFENIB
     Indication: METASTATIC RENAL CELL CARCINOMA
     Dosage: DAILY DOSE 800 MG
     Route: 048
     Dates: start: 20140923, end: 20141127
  6. METFORMIN [Concomitant]
     Active Substance: METFORMIN HYDROCHLORIDE
     Indication: DIABETES MELLITUS
     Dosage: DAILY DOSE 1000 MG
  7. DIAMICRON [Concomitant]
     Active Substance: GLICLAZIDE
     Indication: DIABETES MELLITUS
     Dosage: DAILY DOSE 30 MG

REACTIONS (4)
  - Tachyarrhythmia [Recovered/Resolved]
  - Pericardial effusion [Recovered/Resolved]
  - Disseminated intravascular coagulation [Recovered/Resolved]
  - Transaminases increased [Recovered/Resolved]

NARRATIVE: CASE EVENT DATE: 20141128
